FAERS Safety Report 5115597-6 (Version None)
Quarter: 2006Q3

REPORT INFORMATION
  Report Type: 
  Country: None (occurrence: None)
  Receive Date: 20060925
  Receipt Date: 20060914
  Transmission Date: 20061208
  Serious: Yes (Other)
  Sender: FDA-Public Use
  Company Number: 2006112392

PATIENT
  Sex: Male

DRUGS (1)
  1. PURELL ORIGINAL (ETHYL ALCOHOL) [Suspect]
     Dosage: ONCE, TOPICAL
     Route: 061
     Dates: start: 20060914, end: 20060914

REACTIONS (1)
  - BURNING SENSATION [None]
